FAERS Safety Report 12487976 (Version 1)
Quarter: 2016Q2

REPORT INFORMATION
  Report Type: Spontaneous
  Country: US (occurrence: US)
  Receive Date: 20160622
  Receipt Date: 20160622
  Transmission Date: 20160815
  Serious: No
  Sender: FDA-Public Use
  Company Number: US-009507513-1606USA008833

PATIENT
  Sex: Female

DRUGS (5)
  1. BELSOMRA [Suspect]
     Active Substance: SUVOREXANT
     Dosage: 15 MG, UNK
     Route: 048
     Dates: start: 2016, end: 2016
  2. BELSOMRA [Suspect]
     Active Substance: SUVOREXANT
     Dosage: 20 MG, UNK
     Route: 048
     Dates: start: 2016
  3. GABAPENTIN. [Concomitant]
     Active Substance: GABAPENTIN
  4. BELSOMRA [Suspect]
     Active Substance: SUVOREXANT
     Dosage: 10 MG, UNK
     Route: 048
     Dates: start: 2016, end: 2016
  5. BELSOMRA [Suspect]
     Active Substance: SUVOREXANT
     Indication: INSOMNIA
     Dosage: 5 MG, UNK
     Route: 048
     Dates: start: 201604, end: 2016

REACTIONS (3)
  - Drug ineffective [Not Recovered/Not Resolved]
  - Prescribed underdose [Unknown]
  - Somnolence [Not Recovered/Not Resolved]

NARRATIVE: CASE EVENT DATE: 2016
